FAERS Safety Report 5012134-1 (Version None)
Quarter: 2006Q2

REPORT INFORMATION
  Report Type: 
  Country: None (occurrence: None)
  Receive Date: 20060524
  Receipt Date: 20060520
  Transmission Date: 20061013
  Serious: Yes (Other)
  Sender: FDA-Public Use
  Company Number: 219863

PATIENT
  Age: 65 Year
  Sex: Female
  Weight: 70.4 kg

DRUGS (6)
  1. AVASTIN [Suspect]
     Indication: BREAST CANCER
     Dosage: 10 MG/KG, Q2W, INTRAVENOUS
     Route: 042
     Dates: start: 20050801
  2. AVASTIN [Suspect]
  3. AVASTIN [Suspect]
  4. AVASTIN [Suspect]
  5. AVASTIN [Suspect]
  6. TAXOL [Concomitant]

REACTIONS (3)
  - ANAL DISCOMFORT [None]
  - SKIN DISORDER [None]
  - VULVOVAGINAL DISCOMFORT [None]
